FAERS Safety Report 24587819 (Version 1)
Quarter: 2024Q4

REPORT INFORMATION
  Report Type: Report from Study
  Country: MX (occurrence: MX)
  Receive Date: 20241107
  Receipt Date: 20241107
  Transmission Date: 20250114
  Serious: Yes (Other)
  Sender: BIOVITRUM
  Company Number: MX-AstraZeneca-2024A145197

PATIENT
  Age: 3 Month
  Sex: Male
  Weight: 3.895 kg

DRUGS (13)
  1. PALIVIZUMAB [Suspect]
     Active Substance: PALIVIZUMAB
     Indication: Respiratory syncytial virus infection
     Dosage: 1ST DOSE (MONTHLY)
     Route: 030
  2. PALIVIZUMAB [Suspect]
     Active Substance: PALIVIZUMAB
     Dosage: 2ND DOSE (MONTHLY)
     Route: 030
     Dates: start: 20240716, end: 20240716
  3. PALIVIZUMAB [Suspect]
     Active Substance: PALIVIZUMAB
     Dosage: 3RD DOSE (MONTHLY)
     Route: 030
     Dates: start: 20240820, end: 20240820
  4. PALIVIZUMAB [Suspect]
     Active Substance: PALIVIZUMAB
     Dosage: 4TH DOSE (MONTHLY)
     Route: 030
     Dates: start: 20240924, end: 20240924
  5. PALIVIZUMAB [Suspect]
     Active Substance: PALIVIZUMAB
     Dosage: 5TH DOSE (MONTHLY)
     Route: 030
     Dates: start: 20241021, end: 20241021
  6. VITAMIN D3 [Concomitant]
     Active Substance: CHOLECALCIFEROL
     Indication: Product used for unknown indication
     Dosage: 5 DROP, QD
     Route: 048
  7. ASCORBIC ACID [Concomitant]
     Active Substance: ASCORBIC ACID
     Indication: Product used for unknown indication
  8. VITAMIN E [Concomitant]
     Active Substance: .ALPHA.-TOCOPHEROL
     Indication: Product used for unknown indication
     Dosage: 2 DROP, QD
     Route: 048
  9. SPIRONOLACTONE [Concomitant]
     Active Substance: SPIRONOLACTONE
     Indication: Product used for unknown indication
     Dosage: 1 DOSAGE FORM, QD
     Route: 048
  10. IRON [Concomitant]
     Active Substance: IRON
     Indication: Product used for unknown indication
     Dosage: 10 DROP, QD
     Route: 048
  11. SILDENAFIL [Concomitant]
     Active Substance: SILDENAFIL
     Indication: Product used for unknown indication
     Dosage: 6 MILLIGRAM, Q12H
     Route: 048
  12. CISAPRIDE [Concomitant]
     Active Substance: CISAPRIDE
     Indication: Product used for unknown indication
     Dosage: 5 MILLILITER, Q8H
     Route: 048
  13. FOLIC ACID [Concomitant]
     Active Substance: FOLIC ACID
     Indication: Product used for unknown indication
     Dosage: 10 MILLIGRAM, QD
     Route: 048

REACTIONS (6)
  - Pulmonary congestion [Unknown]
  - Body temperature increased [Recovered/Resolved]
  - Crying [Recovered/Resolved]
  - Pain in extremity [Recovered/Resolved]
  - Restlessness [Unknown]
  - Snoring [Unknown]

NARRATIVE: CASE EVENT DATE: 20240618
